FAERS Safety Report 7377103-5 (Version None)
Quarter: 2011Q1

REPORT INFORMATION
  Report Type: 
  Country: None (occurrence: None)
  Receive Date: 20110328
  Receipt Date: 20110317
  Transmission Date: 20110831
  Serious: No
  Sender: FDA-Public Use
  Company Number: US-BIOGENIDEC-2011BI010383

PATIENT
  Sex: Female

DRUGS (2)
  1. TYSABRI [Suspect]
     Indication: MULTIPLE SCLEROSIS
     Route: 042
     Dates: start: 20100309
  2. TYSABRI [Suspect]
     Route: 042
     Dates: start: 20070110, end: 20070626

REACTIONS (4)
  - BONE DENSITY ABNORMAL [None]
  - HEADACHE [None]
  - SWELLING FACE [None]
  - OEDEMA PERIPHERAL [None]
